FAERS Safety Report 20774076 (Version 1)
Quarter: 2022Q2

REPORT INFORMATION
  Report Type: Spontaneous
  Country: None (occurrence: GB)
  Receive Date: 20220502
  Receipt Date: 20220502
  Transmission Date: 20220721
  Serious: Yes (Hospitalization, Other)
  Sender: FDA-Public Use
  Company Number: GB-Breckenridge Pharmaceutical, Inc.-2128368

PATIENT
  Age: 36 Year
  Sex: Male

DRUGS (1)
  1. OMEPRAZOLE [Suspect]
     Active Substance: OMEPRAZOLE
     Indication: Helicobacter infection
     Route: 048
     Dates: start: 20170404

REACTIONS (7)
  - Weight decreased [Unknown]
  - Weaning failure [Unknown]
  - Rebound acid hypersecretion [Not Recovered/Not Resolved]
  - Food intolerance [Unknown]
  - Adverse drug reaction [Unknown]
  - Medication error [Unknown]
  - Gastrointestinal pain [Unknown]
